FAERS Safety Report 10298074 (Version 1)
Quarter: 2014Q3

REPORT INFORMATION
  Report Type: Spontaneous
  Country: US (occurrence: US)
  Receive Date: 20140711
  Receipt Date: 20140711
  Transmission Date: 20150326
  Serious: No
  Sender: FDA-Public Use
  Company Number: US-GLAXOSMITHKLINE-A1039870A

PATIENT
  Age: 75 Year
  Sex: Female

DRUGS (10)
  1. LEVOTHYROXINE [Concomitant]
     Active Substance: LEVOTHYROXINE
  2. PANOXYL [Concomitant]
     Active Substance: BENZOYL PEROXIDE
  3. ZANTAC [Concomitant]
     Active Substance: RANITIDINE HYDROCHLORIDE
  4. AZATADINE [Concomitant]
     Active Substance: AZATADINE
  5. CHLORTHALIDONE. [Concomitant]
     Active Substance: CHLORTHALIDONE
  6. VENTOLIN [Suspect]
     Active Substance: ALBUTEROL SULFATE
     Indication: ASTHMA
     Dosage: 1PUFF SINGLE DOSE
     Route: 055
     Dates: start: 20130829, end: 20130830
  7. FLOVENT [Suspect]
     Active Substance: FLUTICASONE PROPIONATE
     Indication: ASTHMA
     Dosage: 2PUFF TWICE PER DAY
     Route: 055
     Dates: start: 201305
  8. ALBUTEROL. [Suspect]
     Active Substance: ALBUTEROL
     Route: 055
  9. ZYRTEC [Concomitant]
     Active Substance: CETIRIZINE HYDROCHLORIDE
  10. UNSPECIFIED MEDICATION [Concomitant]
     Active Substance: UNSPECIFIED INGREDIENT
     Indication: RESTLESS LEGS SYNDROME

REACTIONS (3)
  - Dyspnoea [Unknown]
  - Anxiety [Recovering/Resolving]
  - Restless legs syndrome [Unknown]

NARRATIVE: CASE EVENT DATE: 20130829
